FAERS Safety Report 8137382-3 (Version None)
Quarter: 2012Q1

REPORT INFORMATION
  Report Type: 
  Country: None (occurrence: None)
  Receive Date: 20120103
  Receipt Date: 20111028
  Transmission Date: 20120608
  Serious: No
  Sender: FDA-Public Use
  Company Number: AE-2011-002326

PATIENT
  Age: 62 Year
  Sex: Female
  Weight: 72.5755 kg

DRUGS (4)
  1. PEGINTEFERON (PEGINTERFERON ALFA-2A) [Concomitant]
  2. NEXIUM [Concomitant]
  3. INCIVEK [Suspect]
     Dosage: 2250 MG (750 MG, 1 IN 8 HR), ORAL
     Route: 048
     Dates: start: 20111010
  4. RIBAVIRIN [Concomitant]

REACTIONS (5)
  - LETHARGY [None]
  - VOMITING [None]
  - MALAISE [None]
  - DECREASED APPETITE [None]
  - FATIGUE [None]
